FAERS Safety Report 6417723-5 (Version None)
Quarter: 2009Q4

REPORT INFORMATION
  Report Type: 
  Country: None (occurrence: None)
  Receive Date: 20091027
  Receipt Date: 20091027
  Transmission Date: 20100525
  Serious: Yes (Life-Threatening, Hospitalization)
  Sender: FDA-Public Use
  Company Number: None

PATIENT
  Age: 59 Year
  Sex: Male
  Weight: 77.5 kg

DRUGS (8)
  1. WARFARIN SODIUM [Suspect]
     Indication: AORTIC VALVE REPAIR
     Dosage: 10MG DAILY PO
     Route: 048
     Dates: start: 20090828
  2. DOCUSATE [Concomitant]
  3. FUROSEMIDE [Concomitant]
  4. HCL [Concomitant]
  5. PRILOSEC [Concomitant]
  6. METOPROLOL [Concomitant]
  7. SIMVASTATIN [Concomitant]
  8. OXYCODONE [Concomitant]

REACTIONS (5)
  - APHASIA [None]
  - CEREBRAL INFARCTION [None]
  - CONFUSIONAL STATE [None]
  - EMBOLIC STROKE [None]
  - INTERNATIONAL NORMALISED RATIO DECREASED [None]
